FAERS Safety Report 9865060 (Version 2)
Quarter: 2014Q1

REPORT INFORMATION
  Report Type: Spontaneous
  Country: US (occurrence: US)
  Receive Date: 20140203
  Receipt Date: 20140203
  Transmission Date: 20141002
  Serious: Yes (Other)
  Sender: FDA-Public Use
  Company Number: US-AMGEN-USASP2014004614

PATIENT
  Age: 58 Year
  Sex: Female

DRUGS (3)
  1. ENBREL [Suspect]
     Indication: RHEUMATOID ARTHRITIS
     Dosage: 50 MG, QWK
     Route: 065
     Dates: start: 20000601, end: 20140111
  2. METHOTREXATE [Concomitant]
     Dosage: 7.5 MG, QWK
     Route: 048
  3. PLAQUENIL                          /00072602/ [Concomitant]
     Dosage: 200 MG, QD
     Route: 048

REACTIONS (8)
  - Bacteraemia [Not Recovered/Not Resolved]
  - Conjunctivitis [Not Recovered/Not Resolved]
  - Oropharyngeal pain [Not Recovered/Not Resolved]
  - Haemoptysis [Not Recovered/Not Resolved]
  - Sputum discoloured [Not Recovered/Not Resolved]
  - Ear pain [Recovered/Resolved]
  - Musculoskeletal stiffness [Recovered/Resolved]
  - Headache [Recovered/Resolved]
